FAERS Safety Report 21137874 (Version 3)
Quarter: 2024Q4

REPORT INFORMATION
  Report Type: Spontaneous
  Country: US (occurrence: US)
  Receive Date: 20220727
  Receipt Date: 20241014
  Transmission Date: 20250115
  Serious: No
  Sender: ORGANON
  Company Number: US-ORGANON-O2207USA001155

PATIENT
  Sex: Female

DRUGS (4)
  1. ASMANEX [Suspect]
     Active Substance: MOMETASONE FUROATE
     Indication: Asthma
     Dosage: 220MCG 60 DOSE
     Dates: start: 2018
  2. ASMANEX [Suspect]
     Active Substance: MOMETASONE FUROATE
     Indication: Hypersensitivity
  3. ASMANEX [Suspect]
     Active Substance: MOMETASONE FUROATE
     Indication: Asthma
     Dosage: 1-2 INHALATIONS ONCE A DAY; 60 DOSE INHALER
     Dates: start: 20220702, end: 202207
  4. ASMANEX [Suspect]
     Active Substance: MOMETASONE FUROATE
     Indication: Hypersensitivity

REACTIONS (5)
  - Dyspnoea [Unknown]
  - Wheezing [Unknown]
  - Device malfunction [Unknown]
  - Poor quality device used [Unknown]
  - Product use in unapproved indication [Unknown]

NARRATIVE: CASE EVENT DATE: 20180101
